FAERS Safety Report 8813109 (Version 2)
Quarter: 2012Q4

REPORT INFORMATION
  Report Type: 
  Country: US (occurrence: US)
  Receive Date: 20120927
  Receipt Date: 20121219
  Transmission Date: 20130627
  Serious: No
  Sender: FDA-Public Use
  Company Number: US-AMGEN-USASP2012053104

PATIENT
  Age: 65 Year
  Sex: Female
  Weight: 52.61 kg

DRUGS (2)
  1. PROLIA [Suspect]
     Indication: OSTEOPOROSIS POSTMENOPAUSAL
     Dosage: UNK UNK, q6mo
     Route: 058
     Dates: start: 20120809
  2. PROLIA [Suspect]
     Dosage: UNK
     Dates: start: 20120815

REACTIONS (2)
  - Back pain [Unknown]
  - Pain in extremity [Unknown]
